FAERS Safety Report 6970247-9 (Version None)
Quarter: 2010Q3

REPORT INFORMATION
  Report Type: 
  Country: None (occurrence: None)
  Receive Date: 20100908
  Receipt Date: 20100826
  Transmission Date: 20110219
  Serious: Yes (Other)
  Sender: FDA-Public Use
  Company Number: PHHY2010JP26933

PATIENT
  Age: 72 Year
  Sex: Female

DRUGS (3)
  1. AREDIA [Suspect]
     Indication: METASTASES TO BONE
     Dosage: 90MG (PER ADMINISTRATION)
     Route: 041
     Dates: start: 20070401, end: 20070901
  2. FEMARA [Suspect]
     Indication: BREAST CANCER
     Dosage: 2.5 MG, UNK
     Route: 048
     Dates: start: 20070401, end: 20090901
  3. ZOLEDRONIC ACID [Suspect]
     Dosage: UNK

REACTIONS (4)
  - EFFUSION [None]
  - HEADACHE [None]
  - INCISIONAL DRAINAGE [None]
  - OTITIS MEDIA [None]
